FAERS Safety Report 18157047 (Version 1)
Quarter: 2020Q3

REPORT INFORMATION
  Report Type: Report from Study
  Country: TH (occurrence: TH)
  Receive Date: 20200817
  Receipt Date: 20200817
  Transmission Date: 20201103
  Serious: Yes (Hospitalization)
  Sender: FDA-Public Use
  Company Number: TH-MYLANLABS-2020M1071796

PATIENT
  Age: 72 Year
  Sex: Female
  Weight: 41.4 kg

DRUGS (17)
  1. FUROSEMIDE. [Concomitant]
     Active Substance: FUROSEMIDE
     Dosage: UNK
     Dates: start: 20190207
  2. RANITIDINE. [Concomitant]
     Active Substance: RANITIDINE
     Dosage: UNK
     Dates: start: 20190510
  3. PEGPH20 [Suspect]
     Active Substance: PEGVORHYALURONIDASE ALFA
     Indication: CHOLANGIOCARCINOMA
     Dosage: 3.0 MICROGRAM/KILOGRAM
     Route: 042
     Dates: start: 20190206
  4. AMLODIPINE [Concomitant]
     Active Substance: AMLODIPINE BESYLATE
     Dosage: UNK
     Dates: start: 20180920
  5. ENSURE [Concomitant]
     Active Substance: AMINO ACIDS\DEXTROSE\ELECTROLYTES NOS\SOYBEAN OIL\VITAMINS
     Dosage: UNK
     Dates: start: 20190206
  6. ENOXAPARIN [Concomitant]
     Active Substance: ENOXAPARIN
     Dosage: UNK
     Dates: start: 20190206
  7. NORMAL SALINE [Concomitant]
     Active Substance: SODIUM CHLORIDE
     Dosage: UNK
     Dates: start: 20190207
  8. ONDANSETRON [Concomitant]
     Active Substance: ONDANSETRON
     Dosage: UNK
     Dates: start: 20190207
  9. CISPLATIN. [Suspect]
     Active Substance: CISPLATIN
     Indication: CHOLANGIOCARCINOMA
     Dosage: 34.5 MILLIGRAM/SQ. METER
     Route: 042
     Dates: start: 20190207
  10. OMEPRAZOLE. [Concomitant]
     Active Substance: OMEPRAZOLE
     Dosage: UNK
  11. ATEZOLIZUMAB. [Suspect]
     Active Substance: ATEZOLIZUMAB
     Indication: PRODUCT USED FOR UNKNOWN INDICATION
     Dosage: UNK
     Route: 065
  12. GEMCITABINE. [Suspect]
     Active Substance: GEMCITABINE
     Indication: CHOLANGIOCARCINOMA
     Dosage: 1380 MILLIGRAM/SQ. METER
     Route: 042
     Dates: start: 20190207
  13. ENALAPRIL [Concomitant]
     Active Substance: ENALAPRIL
     Dosage: UNK
     Dates: start: 20180920
  14. LORAZEPAM. [Concomitant]
     Active Substance: LORAZEPAM
     Dosage: UNK
     Dates: start: 20190207
  15. SIMVASTATIN. [Concomitant]
     Active Substance: SIMVASTATIN
     Dosage: UNK
     Dates: start: 20180920
  16. SENNOSIDE                          /00571901/ [Concomitant]
     Active Substance: SENNOSIDES A AND B
     Dosage: UNK
     Dates: start: 20190429
  17. DOMPERIDONE [Concomitant]
     Active Substance: DOMPERIDONE
     Dosage: UNK
     Dates: start: 20190510

REACTIONS (8)
  - Ascites [Recovered/Resolved]
  - Abdominal pain [Recovered/Resolved]
  - Myalgia [Recovered/Resolved]
  - Cough [Recovered/Resolved]
  - Abdominal discomfort [Recovered/Resolved]
  - Diarrhoea [Recovered/Resolved]
  - Pyrexia [Recovered/Resolved]
  - Chills [Recovered/Resolved]

NARRATIVE: CASE EVENT DATE: 20190523
